FAERS Safety Report 24158014 (Version 1)
Quarter: 2024Q3

REPORT INFORMATION
  Report Type: Spontaneous
  Country: JP (occurrence: JP)
  Receive Date: 20240731
  Receipt Date: 20240731
  Transmission Date: 20241016
  Serious: Yes (Other)
  Sender: MERCK
  Company Number: JP-MSD-2407JPN004747JAA

PATIENT
  Sex: Female

DRUGS (4)
  1. KEYTRUDA [Suspect]
     Active Substance: PEMBROLIZUMAB
     Indication: Cervix carcinoma
     Dosage: UNK
     Route: 065
  2. KEYTRUDA [Suspect]
     Active Substance: PEMBROLIZUMAB
     Dosage: UNK
     Route: 065
  3. PACLITAXEL [Suspect]
     Active Substance: PACLITAXEL
     Indication: Cervix carcinoma
     Dosage: UNK
     Route: 065
  4. CARBOPLATIN [Suspect]
     Active Substance: CARBOPLATIN
     Indication: Cervix carcinoma
     Dosage: UNK
     Route: 065

REACTIONS (10)
  - Meningitis aseptic [Recovering/Resolving]
  - Oral mucosal erythema [Unknown]
  - Enanthema [Unknown]
  - Lip swelling [Unknown]
  - Rash [Recovering/Resolving]
  - Pyrexia [Recovered/Resolved]
  - Aphthous ulcer [Unknown]
  - Liver disorder [Unknown]
  - Erythema [Recovered/Resolved]
  - Stomatitis [Unknown]
